FAERS Safety Report 4987572-3 (Version None)
Quarter: 2006Q2

REPORT INFORMATION
  Report Type: 
  Country: None (occurrence: None)
  Receive Date: 20060424
  Receipt Date: 20060410
  Transmission Date: 20061013
  Serious: Yes (Hospitalization, Other)
  Sender: FDA-Public Use
  Company Number: 2006AL000943

PATIENT
  Age: 54 Year
  Sex: Male

DRUGS (13)
  1. OXYCODONE + ACETAMINOPHEN CAPSULES, USP 5 MG/500 MG (AMIDE) [Suspect]
     Indication: PAIN
     Dates: start: 20050201
  2. OXYCODONE HCL [Suspect]
     Indication: PAIN
     Dosage: 60 MG; QD; PO
     Route: 048
     Dates: start: 20051027
  3. CEP-25608 [Suspect]
     Indication: PAIN
     Dosage: 800 UG; PRN; BUCC
     Route: 002
     Dates: start: 20051230, end: 20060219
  4. PROPOXYPHENE WITH ACETAMINOPHEN MELOXICAM [Concomitant]
  5. ATORVASTATIN [Concomitant]
  6. GLYBURIDE [Concomitant]
  7. ASPIRIN [Concomitant]
  8. CLOPIDOGREL [Concomitant]
  9. METOPROLOL [Concomitant]
  10. NIACIN [Concomitant]
  11. LOVASTATIN [Concomitant]
  12. NITROPASTE [Concomitant]
  13. TRIAMTERENE AND HYDROCHLOROTHIAZIDE [Concomitant]

REACTIONS (4)
  - DEPRESSED LEVEL OF CONSCIOUSNESS [None]
  - DRUG WITHDRAWAL SYNDROME [None]
  - OVERDOSE [None]
  - RESPIRATORY DISTRESS [None]
